FAERS Safety Report 24776662 (Version 1)
Quarter: 2024Q4

REPORT INFORMATION
  Report Type: Spontaneous
  Country: IN (occurrence: IN)
  Receive Date: 20241226
  Receipt Date: 20241226
  Transmission Date: 20250115
  Serious: Yes (Hospitalization, Other)
  Sender: AZURITY PHARMACEUTICALS
  Company Number: IN-AZURITY PHARMACEUTICALS, INC.-AZR202412-001336

PATIENT
  Age: 39 Year
  Sex: Male

DRUGS (5)
  1. BACLOFEN [Suspect]
     Active Substance: BACLOFEN
     Indication: Product used for unknown indication
     Dosage: 60 MILLIGRAM, QD
     Route: 048
  2. BACLOFEN [Suspect]
     Active Substance: BACLOFEN
     Dosage: 200 MILLIGRAM, UNKNOWN
     Route: 048
  3. BACLOFEN [Suspect]
     Active Substance: BACLOFEN
     Dosage: 150 MILLIGRAM, 2-3 TIMES A WEEK
     Route: 048
  4. BACLOFEN [Suspect]
     Active Substance: BACLOFEN
     Dosage: 20/30 MILLIGRAM, UNKNOWN
     Route: 048
  5. BACLOFEN [Suspect]
     Active Substance: BACLOFEN
     Dosage: 40 MILLIGRAM, UNKNOWN
     Route: 048
     Dates: end: 20221017

REACTIONS (10)
  - Upper gastrointestinal haemorrhage [Recovered/Resolved]
  - Peptic ulcer [Recovered/Resolved]
  - Bradycardia [Recovered/Resolved]
  - Bradypnoea [Recovered/Resolved]
  - Hypotension [Recovered/Resolved]
  - Loss of consciousness [Recovered/Resolved]
  - Respiratory depression [Recovered/Resolved]
  - Stupor [Recovered/Resolved]
  - Substance use [Unknown]
  - Intentional overdose [Unknown]

NARRATIVE: CASE EVENT DATE: 20221001
